FAERS Safety Report 14345203 (Version 3)
Quarter: 2018Q2

REPORT INFORMATION
  Report Type: Report from Study
  Country: JP (occurrence: JP)
  Receive Date: 20180103
  Receipt Date: 20180406
  Transmission Date: 20180711
  Serious: Yes (Hospitalization, Other)
  Sender: FDA-Public Use
  Company Number: JP-BRISTOL-MYERS SQUIBB COMPANY-BMS-2017-118081

PATIENT
  Age: 71 Year
  Sex: Male
  Weight: 68.2 kg

DRUGS (8)
  1. LENALIDOMIDE [Suspect]
     Active Substance: LENALIDOMIDE
     Indication: PLASMA CELL MYELOMA
     Dosage: 5.10 MG, QD
     Route: 065
     Dates: start: 20170208, end: 20170629
  2. ELOTUZUMAB. [Suspect]
     Active Substance: ELOTUZUMAB
     Indication: PRODUCT USED FOR UNKNOWN INDICATION
     Dosage: 10 MG/KG, Q2WK
     Route: 041
     Dates: start: 20170406, end: 20170615
  3. DEXAMETHASONE. [Concomitant]
     Active Substance: DEXAMETHASONE
     Indication: PRODUCT USED FOR UNKNOWN INDICATION
     Dosage: 8 MG, Q2WK
     Route: 041
     Dates: start: 20170406, end: 20170615
  4. DEXAMETHASONE. [Concomitant]
     Active Substance: DEXAMETHASONE
     Indication: PRODUCT USED FOR UNKNOWN INDICATION
     Dosage: 8 MG, Q2WK
     Route: 048
     Dates: start: 20170406, end: 20170706
  5. DEXAMETHASONE. [Concomitant]
     Active Substance: DEXAMETHASONE
     Indication: PLASMA CELL MYELOMA
     Dosage: 28 MG, QWK
     Route: 048
     Dates: start: 20170208, end: 20170330
  6. DEXAMETHASONE. [Concomitant]
     Active Substance: DEXAMETHASONE
     Indication: PLASMA CELL MYELOMA
     Dosage: 8 MG, QWK
     Route: 041
     Dates: start: 20170208, end: 20170330
  7. ACICLOVIR [Concomitant]
     Active Substance: ACYCLOVIR
     Indication: HERPES VIRUS INFECTION
     Dosage: 200 MG, QD
     Route: 065
  8. ELOTUZUMAB. [Suspect]
     Active Substance: ELOTUZUMAB
     Indication: PLASMA CELL MYELOMA
     Dosage: 8.8 MG/KG, QWK
     Route: 041
     Dates: start: 20170208, end: 20170330

REACTIONS (4)
  - White blood cell count decreased [Recovered/Resolved]
  - Anaemia [Recovering/Resolving]
  - Platelet count decreased [Recovered/Resolved]
  - Malignant neoplasm progression [Unknown]

NARRATIVE: CASE EVENT DATE: 20170210
